FAERS Safety Report 5923956-4 (Version None)
Quarter: 2008Q4

REPORT INFORMATION
  Report Type: 
  Country: None (occurrence: None)
  Receive Date: 20081020
  Receipt Date: 20081010
  Transmission Date: 20090506
  Serious: Yes (Disabling)
  Sender: FDA-Public Use
  Company Number: JP-EISAI MEDICAL RESEARCH-E2090-00567-SPO-JP

PATIENT
  Age: 44 Year
  Sex: Female

DRUGS (2)
  1. EXCEGRAN [Suspect]
     Indication: EPILEPSY
     Route: 048
  2. NEOMALLERMIN [Concomitant]
     Route: 048

REACTIONS (1)
  - DRUG HYPERSENSITIVITY [None]
